FAERS Safety Report 11061257 (Version 1)
Quarter: 2015Q2

REPORT INFORMATION
  Report Type: Spontaneous
  Country: US (occurrence: US)
  Receive Date: 20150424
  Receipt Date: 20150424
  Transmission Date: 20150821
  Serious: No
  Sender: FDA-Public Use
  Company Number: US-TEVA-481557USA

PATIENT
  Sex: Female

DRUGS (1)
  1. ACICLOVIR [Suspect]
     Active Substance: ACYCLOVIR
     Indication: HERPES ZOSTER
     Dates: start: 1995

REACTIONS (3)
  - Drug ineffective [Unknown]
  - Pruritus generalised [Unknown]
  - Rash [Unknown]

NARRATIVE: CASE EVENT DATE: 201405
